FAERS Safety Report 4406985-1 (Version None)
Quarter: 2004Q2

REPORT INFORMATION
  Report Type: 
  Country: None (occurrence: None)
  Receive Date: 20040618
  Receipt Date: 20040419
  Transmission Date: 20050107
  Serious: No
  Sender: FDA-Public Use
  Company Number: US-JNJFOC-20040404667

PATIENT
  Age: 35 Year
  Sex: Female
  Weight: 77.1115 kg

DRUGS (4)
  1. ORTHO EVRA [Suspect]
     Indication: CONTRACEPTION
     Dosage: 1 DOSE(S), 3 IN 4 WEEK, TRANSDERMAL
     Route: 062
     Dates: start: 20030801, end: 20040419
  2. MULTIVITAMINS (MULTIVITAMINS) UNSPECIFIED [Concomitant]
  3. CALADRYL (CALADRYL) LOTION [Concomitant]
  4. BENADRYL (DIPHENHYDRAMINE HYDROCHLORIDE) UNSPECIFIED [Concomitant]

REACTIONS (2)
  - APPLICATION SITE REACTION [None]
  - URTICARIA [None]
